FAERS Safety Report 4268557-1 (Version None)
Quarter: 2004Q1

REPORT INFORMATION
  Report Type: 
  Country: None (occurrence: None)
  Receive Date: 20040108
  Receipt Date: 20031229
  Transmission Date: 20041129
  Serious: Yes (Other)
  Sender: FDA-Public Use
  Company Number: US-JNJFOC-20031102851

PATIENT
  Age: 55 Year
  Sex: Male
  Weight: 86.637 kg

DRUGS (19)
  1. REMICADE [Suspect]
     Dosage: 5 MG/KG, INTRAVENOUS
     Route: 042
     Dates: start: 20031113, end: 20031113
  2. REMICADE [Suspect]
     Dosage: 5 MG/KG, INTRAVENOUS
     Route: 042
     Dates: start: 20031218, end: 20031218
  3. REMICADE [Suspect]
     Dosage: 5 MG/KG, INTRAVENOUS
     Route: 042
     Dates: start: 20001207
  4. REMICADE [Suspect]
     Dosage: 5 MG/KG, INTRAVENOUS
     Route: 042
     Dates: start: 20010315
  5. REMICADE [Suspect]
     Dosage: 5 MG/KG, INTRAVENOUS
     Route: 042
     Dates: start: 20010719
  6. REMICADE [Suspect]
     Dosage: 5 MG/KG, INTRAVENOUS
     Route: 042
     Dates: start: 20011101
  7. REMICADE [Suspect]
     Dosage: 5 MG/KG, INTRAVENOUS
     Route: 042
     Dates: start: 20020103
  8. REMICADE [Suspect]
     Dosage: 5 MG/KG, INTRAVENOUS
     Route: 042
     Dates: start: 20020321
  9. REMICADE [Suspect]
     Dosage: 5 MG/KG, INTRAVENOUS
     Route: 042
     Dates: start: 20020606
  10. REMICADE [Suspect]
     Dosage: 5 MG/KG, INTRAVENOUS
     Route: 042
     Dates: start: 20020815
  11. REMICADE [Suspect]
     Dosage: 5 MG/KG, INTRAVENOUS
     Route: 042
     Dates: start: 20021104
  12. REMICADE [Suspect]
     Dosage: 5 MG/KG, INTRAVENOUS
     Route: 042
     Dates: start: 20030103
  13. REMICADE [Suspect]
     Dosage: 5 MG/KG, INTRAVENOUS
     Route: 042
     Dates: start: 20030403
  14. REMICADE [Suspect]
     Dosage: 5 MG/KG, INTRAVENOUS
     Route: 042
     Dates: start: 20030731
  15. REMICADE [Suspect]
     Dosage: 5 MG/KG, INTRAVENOUS
     Route: 042
     Dates: start: 20030918
  16. PERCOCET [Concomitant]
  17. HUMULIN INSULIN (INSULIN HUMAN ZINC SUSPENSION) [Concomitant]
  18. ATENOLOL [Concomitant]
  19. ASPIRIN [Concomitant]

REACTIONS (6)
  - BLOOD PRESSURE INCREASED [None]
  - CHEST PAIN [None]
  - CHILLS [None]
  - FLUSHING [None]
  - INFUSION RELATED REACTION [None]
  - URTICARIA [None]
